FAERS Safety Report 7672382-9 (Version None)
Quarter: 2011Q3

REPORT INFORMATION
  Report Type: 
  Country: None (occurrence: None)
  Receive Date: 20110809
  Receipt Date: 20110803
  Transmission Date: 20111222
  Serious: Yes (Other)
  Sender: FDA-Public Use
  Company Number: US-ABBOTT-11P-163-0844299-00

PATIENT
  Age: 42 Year
  Sex: Female

DRUGS (4)
  1. STEROID INHALER [Concomitant]
     Indication: BRONCHITIS
     Dosage: EVERY 4 HOURS AS NEEDED
     Route: 055
  2. HUMIRA [Suspect]
     Indication: PSORIATIC ARTHROPATHY
     Dates: start: 20080101
  3. ALLEGRA [Concomitant]
     Indication: HYPERSENSITIVITY
     Dosage: 1 DAILY AS NEEDED DURING WINTER AND SPRING
     Route: 048
  4. ALBUTEROL SULFATE AUTOHALER [Concomitant]
     Indication: BRONCHITIS
     Dosage: 2 PUFFS EVERY 4 HOURS AS NEEDED
     Route: 055

REACTIONS (7)
  - INSOMNIA [None]
  - PNEUMOTHORAX [None]
  - PNEUMONIA [None]
  - ARTHRALGIA [None]
  - STRESS [None]
  - BRONCHITIS [None]
  - WEIGHT DECREASED [None]
